FAERS Safety Report 26188102 (Version 1)
Quarter: 2025Q4

REPORT INFORMATION
  Report Type: Spontaneous
  Country: EU (occurrence: EU)
  Receive Date: 20251222
  Receipt Date: 20251222
  Transmission Date: 20260117
  Serious: Yes (Other)
  Sender: MYLAN
  Company Number: EU-SANDOZ-SDZ2025DE091493

PATIENT
  Sex: Female
  Weight: 53 kg

DRUGS (4)
  1. PACLITAXEL [Suspect]
     Active Substance: PACLITAXEL
     Indication: Breast cancer
     Dosage: UNK, NOV?DEC CHEMOTHERAPY CYCLE: 3 PACLITAXEL + 1 CARBOPLATIN
  2. PACLITAXEL [Suspect]
     Active Substance: PACLITAXEL
     Indication: Metastases to lymph nodes
     Dosage: UNK, APR?JUN: 2ND CHEMOTHERAPY CYCLE: 8 PACLITAXEL + 3 CARBOPLATIN
  3. CARBOPLATIN [Suspect]
     Active Substance: CARBOPLATIN
     Indication: Breast cancer
     Dosage: UNK, NOV?DEC CHEMOTHERAPY CYCLE: 3 PACLITAXEL + 1 CARBOPLATIN
  4. CARBOPLATIN [Suspect]
     Active Substance: CARBOPLATIN
     Indication: Metastases to lymph nodes
     Dosage: UNK, APR?JUN: 2ND CHEMOTHERAPY CYCLE: 8 PACLITAXEL + 3 CARBOPLATIN

REACTIONS (7)
  - Breast cancer female [Unknown]
  - Metastases to lymph nodes [Unknown]
  - Disease progression [Unknown]
  - Burning sensation [Unknown]
  - Breast pain [Unknown]
  - Fatigue [Unknown]
  - Product use in unapproved indication [Unknown]
